FAERS Safety Report 5133317-6 (Version None)
Quarter: 2006Q4

REPORT INFORMATION
  Report Type: 
  Country: None (occurrence: None)
  Receive Date: 20060831
  Receipt Date: 20060502
  Transmission Date: 20070319
  Serious: No
  Sender: FDA-Public Use
  Company Number: 2006-BP-04011BP

PATIENT
  Sex: Female

DRUGS (8)
  1. SPIRIVA [Suspect]
     Indication: CHRONIC OBSTRUCTIVE PULMONARY DISEASE
     Dosage: 18 MCG (18 MCG,1 IN 1 D),IH
     Dates: start: 20050101
  2. SPIRIVA [Suspect]
  3. ADVAIR DISKUS 100/50 [Suspect]
     Indication: CHRONIC OBSTRUCTIVE PULMONARY DISEASE
     Dosage: (BID),IH
     Dates: start: 20040101, end: 20050101
  4. SINGULAIR [Suspect]
     Indication: CHRONIC OBSTRUCTIVE PULMONARY DISEASE
     Dosage: (QD),PO
     Route: 048
  5. COMBIVENT (COMBIVENT /01261001/) [Concomitant]
  6. VITAMIN D [Concomitant]
  7. MTV (MTV) [Concomitant]
  8. OXYGEN (OXYGEN) [Concomitant]

REACTIONS (4)
  - ASTHENIA [None]
  - FEELING JITTERY [None]
  - HEADACHE [None]
  - PALPITATIONS [None]
